FAERS Safety Report 9043133 (Version 1)
Quarter: 2013Q1

REPORT INFORMATION
  Report Type: Report from Study
  Country: US (occurrence: US)
  Receive Date: 20130129
  Receipt Date: 20130129
  Transmission Date: 20140127
  Serious: No
  Sender: FDA-Public Use
  Company Number: US-ABBOTT-12P-163-0912516-00

PATIENT
  Age: 51 Year
  Sex: Male

DRUGS (13)
  1. HUMIRA 40 MG/0.8 ML PEN [Suspect]
     Indication: COLITIS ULCERATIVE
  2. ASACOL [Concomitant]
     Indication: COLITIS ULCERATIVE
     Dosage: DAILY
  3. PROGRAF [Concomitant]
     Indication: LIVER TRANSPLANT
     Dosage: DAILY
  4. MYFORTIC [Concomitant]
     Indication: LIVER TRANSPLANT
     Dosage: DAILY
  5. LIPITOR [Concomitant]
     Indication: BLOOD CHOLESTEROL INCREASED
     Dosage: DAILY
  6. SYNTHROID [Concomitant]
     Indication: HYPOTHYROIDISM
     Dosage: DAILY
  7. CALCIUM [Concomitant]
     Indication: MINERAL SUPPLEMENTATION
     Dosage: DAILY
  8. IRON SULFATE [Concomitant]
     Indication: MINERAL SUPPLEMENTATION
     Dosage: DAILY
  9. LOPERAMIDE [Concomitant]
     Indication: DIARRHOEA
  10. LOPERAMIDE [Concomitant]
     Indication: COLITIS ULCERATIVE
  11. URSODIOL [Concomitant]
     Indication: CHOLECYSTECTOMY
     Dosage: DAILY
  12. FLORASTOR [Concomitant]
     Indication: COLITIS ULCERATIVE
     Dosage: DAILY
  13. ASPIRIN [Concomitant]
     Indication: PRODUCT USED FOR UNKNOWN INDICATION
     Dosage: DAILY

REACTIONS (3)
  - Injection site pain [Recovered/Resolved]
  - Incorrect dose administered [Recovered/Resolved]
  - Wrong technique in drug usage process [Recovered/Resolved]
